FAERS Safety Report 7849378-7 (Version None)
Quarter: 2011Q4

REPORT INFORMATION
  Report Type: 
  Country: None (occurrence: None)
  Receive Date: 20111021
  Receipt Date: 20111011
  Transmission Date: 20120403
  Serious: Yes (Other)
  Sender: FDA-Public Use
  Company Number: ADR-2010-8666

PATIENT
  Age: 66 Year
  Sex: Female

DRUGS (2)
  1. LIORESAL [Suspect]
     Indication: MULTIPLE SCLEROSIS
     Dosage: 414 MCG, DAILY
  2. LIORESAL [Suspect]
     Indication: MUSCLE SPASTICITY
     Dosage: 414 MCG, DAILY

REACTIONS (3)
  - DEVICE BREAKAGE [None]
  - BLOOD CREATINE PHOSPHOKINASE INCREASED [None]
  - TREMOR [None]
